FAERS Safety Report 11092633 (Version 3)
Quarter: 2015Q3

REPORT INFORMATION
  Report Type: Report from Study
  Country: DE (occurrence: BE)
  Receive Date: 20150506
  Receipt Date: 20150708
  Transmission Date: 20151125
  Serious: Yes (Hospitalization)
  Sender: FDA-Public Use
  Company Number: BE-TEVA-560450USA

PATIENT
  Age: 73 Year
  Sex: Female

DRUGS (19)
  1. LITICAN                            /00690801/ [Concomitant]
     Route: 042
     Dates: start: 20150302, end: 20150302
  2. NORIT [Concomitant]
     Indication: PRODUCT USED FOR UNKNOWN INDICATION
     Route: 048
     Dates: start: 201503
  3. OBINUTUZUMAB [Suspect]
     Active Substance: OBINUTUZUMAB
     Indication: CHRONIC LYMPHOCYTIC LEUKAEMIA REFRACTORY
     Dosage: 100 MG, DAY 1, 2, 8 , 15 OF FIRST CYCLE AND DAY 1 OF SUBSEQUENT 28 DAY CYCLE
     Route: 042
     Dates: start: 20150302, end: 20150302
  4. OBINUTUZUMAB [Suspect]
     Active Substance: OBINUTUZUMAB
     Dosage: 1000 MG, DAY 1, 2, 8 , 15 OF FIRST CYCLE AND DAY 1 OF SUBSEQUENT 28 DAY CYCLE
     Route: 042
     Dates: start: 20150316, end: 20150316
  5. OBINUTUZUMAB [Suspect]
     Active Substance: OBINUTUZUMAB
     Dosage: 1000 MG, DAY 1, 2, 8 , 15 OF FIRST CYCLE AND DAY 1 OF SUBSEQUENT 28 DAY CYCLE
     Route: 042
     Dates: start: 20150323, end: 20150323
  6. OBINUTUZUMAB [Suspect]
     Active Substance: OBINUTUZUMAB
     Dosage: 1000 MG, DAY 1, 2, 8 , 15 OF FIRST CYCLE AND DAY 1 OF SUBSEQUENT 28 DAY CYCLE
     Route: 042
     Dates: start: 20150415, end: 20150415
  7. DAFALGAN [Concomitant]
     Active Substance: ACETAMINOPHEN
     Indication: PROPHYLAXIS
     Route: 048
     Dates: start: 20150302, end: 20150303
  8. SOLU-MEDROL [Concomitant]
     Active Substance: METHYLPREDNISOLONE SODIUM SUCCINATE
     Indication: PROPHYLAXIS
     Route: 042
     Dates: start: 20150302, end: 20150303
  9. SOLU-MEDROL [Concomitant]
     Active Substance: METHYLPREDNISOLONE SODIUM SUCCINATE
     Route: 042
     Dates: start: 20150302, end: 20150302
  10. ALLOPURINOL. [Concomitant]
     Active Substance: ALLOPURINOL
     Indication: PROPHYLAXIS
     Route: 048
     Dates: start: 20150227
  11. ENTEROL                            /00838001/ [Concomitant]
     Indication: PRODUCT USED FOR UNKNOWN INDICATION
     Route: 048
     Dates: start: 201503
  12. OBINUTUZUMAB [Suspect]
     Active Substance: OBINUTUZUMAB
     Dosage: 900 MG, DAY 1, 2, 8 , 15 OF FIRST CYCLE AND DAY 1 OF SUBSEQUENT 28 DAY CYCLE
     Route: 042
     Dates: start: 20150303, end: 20150303
  13. CETIRIZINE [Concomitant]
     Active Substance: CETIRIZINE HYDROCHLORIDE
     Indication: PROPHYLAXIS
     Route: 048
     Dates: start: 20150302, end: 20150303
  14. ZYLORIC [Concomitant]
     Active Substance: ALLOPURINOL
     Indication: PROPHYLAXIS
     Route: 048
     Dates: start: 20150227
  15. BENDAMUSTINE HYDROCHLORIDE [Suspect]
     Active Substance: BENDAMUSTINE HYDROCHLORIDE
     Dosage: 70 MG/M2, DAY 1-2 OF EACH CYCLE
     Route: 042
     Dates: start: 20150303, end: 20150303
  16. BENDAMUSTINE HYDROCHLORIDE [Suspect]
     Active Substance: BENDAMUSTINE HYDROCHLORIDE
     Indication: CHRONIC LYMPHOCYTIC LEUKAEMIA REFRACTORY
     Dosage: 70 MG/M2, DAY 1-2 OF EACH CYCLE
     Route: 042
     Dates: start: 20150302, end: 20150302
  17. BENDAMUSTINE HYDROCHLORIDE [Suspect]
     Active Substance: BENDAMUSTINE HYDROCHLORIDE
     Dosage: 70 MG/M2, DAY 1-2 OF EACH CYCLE
     Route: 042
     Dates: start: 20150416, end: 20150416
  18. LITICAN                            /00690801/ [Concomitant]
     Indication: PROPHYLAXIS
     Route: 042
     Dates: start: 20150302, end: 20150303
  19. LITICAN                            /00690801/ [Concomitant]
     Route: 048
     Dates: start: 20150304

REACTIONS (1)
  - Myringitis bullous [Recovered/Resolved]

NARRATIVE: CASE EVENT DATE: 20150422
